FAERS Safety Report 5798399-7 (Version None)
Quarter: 2008Q3

REPORT INFORMATION
  Report Type: 
  Country: None (occurrence: None)
  Receive Date: 20080702
  Receipt Date: 20080620
  Transmission Date: 20090109
  Serious: Yes (Other)
  Sender: FDA-Public Use
  Company Number: PL-ROCHE-572232

PATIENT
  Sex: Female

DRUGS (3)
  1. BONIVA [Suspect]
     Indication: DRUG USE FOR UNKNOWN INDICATION
     Route: 048
  2. 1 CONCOMITANT DRUG [Concomitant]
     Dosage: DRUG NAME: CARDIAC MEDICINES (NOS)
  3. CALCIUM NOS [Concomitant]
     Dosage: DRUG NAME: CALCIUM PRODUCTS NOS

REACTIONS (3)
  - DENTAL NECROSIS [None]
  - OSTEONECROSIS [None]
  - TOOTHACHE [None]
